FAERS Safety Report 8602428-2 (Version None)
Quarter: 2012Q3

REPORT INFORMATION
  Report Type: 
  Country: None (occurrence: None)
  Receive Date: 20120817
  Receipt Date: 20120807
  Transmission Date: 20120928
  Serious: Yes (Hospitalization)
  Sender: FDA-Public Use
  Company Number: US-CELGENEUS-163-20785-12071953

PATIENT
  Age: 74 Year
  Sex: Female
  Weight: 126.5 kg

DRUGS (28)
  1. PREDNISONE TAB [Suspect]
     Dosage: 100 MILLIGRAM
     Route: 048
     Dates: start: 20100223, end: 20100226
  2. ASPIRIN [Concomitant]
     Dosage: 81 MILLIGRAM
     Route: 048
     Dates: start: 20100420
  3. FENTANYL [Concomitant]
     Dosage: 75 MICROGRAM
     Route: 065
  4. THALOMID [Suspect]
     Dosage: 100 MILLIGRAM
     Route: 048
     Dates: start: 20100223, end: 20100226
  5. PRILOSEC [Concomitant]
     Dosage: 20 MILLIGRAM
     Route: 048
  6. DOXYCYCLINE HYCLATE [Concomitant]
     Dosage: 200 MILLIGRAM
     Route: 065
     Dates: start: 20120430
  7. MELPHALAN HYDROCHLORIDE [Suspect]
     Dosage: 9 MILLIGRAM/SQ. METER
     Route: 048
     Dates: start: 20100223, end: 20100226
  8. MELPHALAN HYDROCHLORIDE [Suspect]
     Route: 065
     Dates: start: 20111208, end: 20120201
  9. PREDNISONE TAB [Suspect]
     Dosage: 100 MILLIGRAM
     Route: 048
     Dates: start: 20091118
  10. DOXYCYCLINE HCL [Concomitant]
     Dosage: 200 MILLIGRAM
     Route: 048
  11. AMBIEN [Concomitant]
     Dosage: 5 MILLIGRAM
     Route: 065
     Dates: start: 20100419
  12. FLEXERIL [Concomitant]
     Dosage: 30 MILLIGRAM
     Route: 048
     Dates: start: 20091106
  13. OMEPRAZOLE [Concomitant]
     Dosage: 20 MILLIGRAM
     Route: 065
     Dates: start: 20091216
  14. MELPHALAN HYDROCHLORIDE [Suspect]
     Dosage: 9 MILLIGRAM/SQ. METER
     Route: 048
     Dates: start: 20091118
  15. PHENERGAN HCL [Concomitant]
     Dosage: 4 TEASPOON
     Route: 065
     Dates: start: 20091216
  16. ASPIRIN [Concomitant]
     Dosage: 325 MILLIGRAM
     Route: 048
     Dates: start: 20091118
  17. MULTI-VITAMINS [Concomitant]
     Route: 048
  18. HYDROCODONE BITARTRATE + ACETAMINOPHEN [Concomitant]
     Dosage: 6 CAPSULE
     Route: 065
     Dates: start: 20110121
  19. TRAMADOL HCL [Concomitant]
     Route: 065
     Dates: start: 20100317
  20. PREDNISONE TAB [Suspect]
     Route: 065
     Dates: start: 20111208, end: 20120201
  21. ULTRAM [Concomitant]
     Dosage: 50 MILLIGRAM
     Route: 048
  22. BENADRYL [Concomitant]
     Dosage: 25 MILLIGRAM
     Route: 048
  23. PHENERGAN HCL [Concomitant]
     Dosage: 81 MILLIGRAM
     Route: 048
  24. THALOMID [Suspect]
     Dosage: 100 MILLIGRAM
     Route: 048
     Dates: start: 20091118
  25. ZOMETA [Concomitant]
     Route: 065
     Dates: start: 20120201
  26. TYLENOL [Concomitant]
     Dosage: 3900 MILLIGRAM
     Route: 065
     Dates: start: 20091216
  27. METOPROLOL TARTRATE [Concomitant]
     Dosage: 100 MILLIGRAM
     Route: 065
     Dates: start: 20100317
  28. LOPRESSOR [Concomitant]
     Dosage: 100 MILLIGRAM
     Route: 048

REACTIONS (1)
  - RECTAL CANCER [None]
